FAERS Safety Report 24614005 (Version 2)
Quarter: 2024Q4

REPORT INFORMATION
  Report Type: Spontaneous
  Country: US (occurrence: US)
  Receive Date: 20241113
  Receipt Date: 20241211
  Transmission Date: 20250114
  Serious: Yes (Hospitalization)
  Sender: JOHNSON AND JOHNSON
  Company Number: US-JNJFOC-20241118706

PATIENT
  Age: 69 Year
  Sex: Male

DRUGS (1)
  1. CARVYKTI [Suspect]
     Active Substance: CILTACABTAGENE AUTOLEUCEL
     Indication: Product used for unknown indication
     Route: 065
     Dates: start: 20240903

REACTIONS (8)
  - Pyrexia [Unknown]
  - Cytokine release syndrome [Recovered/Resolved]
  - Shigella infection [Unknown]
  - Colitis [Unknown]
  - Failure to thrive [Unknown]
  - Mental status changes [Unknown]
  - Decreased appetite [Unknown]
  - Diarrhoea [Unknown]

NARRATIVE: CASE EVENT DATE: 20240912
